FAERS Safety Report 5905017-3 (Version None)
Quarter: 2008Q3

REPORT INFORMATION
  Report Type: 
  Country: None (occurrence: None)
  Receive Date: 20080909
  Receipt Date: 20080617
  Transmission Date: 20090109
  Serious: Yes (Death)
  Sender: FDA-Public Use
  Company Number: 163-20785-08041552

PATIENT
  Age: 87 Year
  Sex: Female

DRUGS (2)
  1. THALOMID [Suspect]
     Indication: MULTIPLE MYELOMA
     Dosage: 100 MG, DAILY, ORAL ; 100 MG, 50 MG, DAILY, ORAL
     Route: 048
     Dates: start: 20051024, end: 20060301
  2. THALOMID [Suspect]
     Indication: MULTIPLE MYELOMA
     Dosage: 100 MG, DAILY, ORAL ; 100 MG, 50 MG, DAILY, ORAL
     Route: 048
     Dates: start: 20060421, end: 20080301

REACTIONS (1)
  - DEATH [None]
